FAERS Safety Report 20254610 (Version 3)
Quarter: 2022Q4

REPORT INFORMATION
  Report Type: Report from Study
  Country: US (occurrence: US)
  Receive Date: 20211230
  Receipt Date: 20221017
  Transmission Date: 20230113
  Serious: Yes (Hospitalization, Other)
  Sender: FDA-Public Use
  Company Number: US-BIOVITRUM-2021US12727

PATIENT
  Sex: Male

DRUGS (3)
  1. KINERET [Suspect]
     Active Substance: ANAKINRA
     Indication: Rheumatoid arthritis
     Dates: start: 201904
  2. KINERET [Suspect]
     Active Substance: ANAKINRA
     Dates: start: 20190426
  3. KINERET [Suspect]
     Active Substance: ANAKINRA
     Dates: start: 20190419

REACTIONS (4)
  - Brain neoplasm [Unknown]
  - Pyrexia [Unknown]
  - Oropharyngeal pain [Unknown]
  - Influenza like illness [Unknown]
